FAERS Safety Report 8960116 (Version 1)
Quarter: 2012Q4

REPORT INFORMATION
  Report Type: Report from Study
  Country: FR (occurrence: FR)
  Receive Date: 20121211
  Receipt Date: 20121211
  Transmission Date: 20130627
  Serious: Yes (Hospitalization)
  Sender: FDA-Public Use
  Company Number: FR-BAXTER-2012BAX026061

PATIENT
  Age: 75 Year
  Sex: Male

DRUGS (8)
  1. ENDOXAN 2000 MG, LYOPHILISAT POUR SOLUTION INJECTABLE [Suspect]
     Indication: MANTLE CELL LYMPHOMA
     Dosage: 1500 (units not reported)
     Route: 065
     Dates: start: 20081124, end: 20090427
  2. RITUXIMAB [Suspect]
     Indication: MANTLE CELL LYMPHOMA
     Dosage: 750 (units not reported)
     Route: 065
     Dates: start: 20081124, end: 20090427
  3. PREDNISONE [Suspect]
     Indication: MANTLE CELL LYMPHOMA
     Dosage: 120 (units not provided)
     Route: 065
     Dates: start: 20081124, end: 20090429
  4. DOXORUBICINE [Suspect]
     Indication: MANTLE CELL LYMPHOMA
     Dosage: 100 (units not reported)
     Route: 065
     Dates: start: 20081124, end: 20090427
  5. VINCRISTINE [Suspect]
     Indication: MANTLE CELL LYMPHOMA
     Route: 065
     Dates: start: 20081124, end: 20090203
  6. ZENATE [Concomitant]
     Indication: DRUG USE FOR UNKNOWN INDICATION
     Route: 065
     Dates: start: 20090224
  7. OFLOXACIN [Concomitant]
     Indication: DRUG USE FOR UNKNOWN INDICATION
     Route: 065
     Dates: start: 20090224
  8. PEGFILGRASTIM [Concomitant]
     Indication: DRUG USE FOR UNKNOWN INDICATION
     Route: 065
     Dates: start: 20090408

REACTIONS (3)
  - Hyperthermia [Recovered/Resolved]
  - Pyrexia [Recovered/Resolved]
  - Pyrexia [Recovered/Resolved]
